FAERS Safety Report 15499293 (Version 1)
Quarter: 2018Q4

REPORT INFORMATION
  Report Type: Spontaneous
  Country: SE (occurrence: SE)
  Receive Date: 20181015
  Receipt Date: 20181015
  Transmission Date: 20190205
  Serious: Yes (Other)
  Sender: FDA-Public Use
  Company Number: SE-GLAXOSMITHKLINE-SE2018182258

PATIENT
  Age: 42 Year
  Sex: Female
  Weight: 120 kg

DRUGS (1)
  1. VOXRA [Suspect]
     Active Substance: BUPROPION HYDROCHLORIDE
     Indication: ANXIETY
     Dosage: 150 MG, UNK
     Route: 065
     Dates: start: 20171221, end: 20180125

REACTIONS (3)
  - Reversible cerebral vasoconstriction syndrome [Recovered/Resolved with Sequelae]
  - Headache [Recovered/Resolved with Sequelae]
  - Brain hypoxia [Recovered/Resolved with Sequelae]

NARRATIVE: CASE EVENT DATE: 20171221
